FAERS Safety Report 9690314 (Version 1)
Quarter: 2013Q4

REPORT INFORMATION
  Report Type: Spontaneous
  Country: DE (occurrence: DE)
  Receive Date: 20131115
  Receipt Date: 20131115
  Transmission Date: 20140711
  Serious: Yes (Other)
  Sender: FDA-Public Use
  Company Number: DE-DRREDDYS-GER/GER/13/0035569

PATIENT
  Age: 29 Year
  Sex: Female
  Weight: 59.5 kg

DRUGS (4)
  1. CITALOPRAM [Suspect]
     Indication: DEPRESSION
     Route: 048
     Dates: start: 20120131, end: 20121030
  2. AZITHROMYCIN [Suspect]
     Indication: GYNAECOLOGICAL CHLAMYDIA INFECTION
     Route: 048
  3. GYNVITAL GRAVIDA [Concomitant]
     Indication: PROPHYLAXIS OF NEURAL TUBE DEFECT
     Route: 048
     Dates: start: 20120305, end: 20121030
  4. SPIROPENT [Concomitant]
     Indication: PREMATURE LABOUR
     Dosage: 0.04 [MG/D ]
     Route: 048
     Dates: start: 20120922, end: 20121009

REACTIONS (4)
  - Gynaecological chlamydia infection [Unknown]
  - Premature labour [Unknown]
  - Ventouse extraction [Unknown]
  - Exposure during pregnancy [Unknown]
